FAERS Safety Report 10142904 (Version 1)
Quarter: 2014Q2

REPORT INFORMATION
  Report Type: Spontaneous
  Country: GB (occurrence: None)
  Receive Date: 20140428
  Receipt Date: 20140428
  Transmission Date: 20141212
  Serious: Yes (Disabling, Other)
  Sender: FDA-Public Use
  Company Number: GB-DEXPHARM-20140191

PATIENT
  Age: 59 Year
  Sex: Female

DRUGS (4)
  1. OMEPRAZOLE (BATCH: 8017852) (NON DEXCEL OMEPRAZOLE) [Suspect]
     Indication: GASTRITIS
     Route: 048
     Dates: start: 20140326, end: 20140331
  2. LANSOPRAZOLE [Concomitant]
  3. NUROFEN [Concomitant]
  4. PARACETAMOL [Concomitant]

REACTIONS (4)
  - Arthritis [None]
  - Diarrhoea [None]
  - Limb discomfort [None]
  - Myalgia [None]
